FAERS Safety Report 9760808 (Version 1)
Quarter: 2013Q4

REPORT INFORMATION
  Report Type: Spontaneous
  Country: US (occurrence: US)
  Receive Date: 20131216
  Receipt Date: 20131216
  Transmission Date: 20140711
  Serious: No
  Sender: FDA-Public Use
  Company Number: US-BIOGENIDEC-2013BI107075

PATIENT
  Age: 38 Year
  Sex: Male
  Weight: 83 kg

DRUGS (5)
  1. TECFIDERA [Suspect]
     Indication: PRODUCT USED FOR UNKNOWN INDICATION
     Route: 048
  2. TYLENOL [Concomitant]
  3. VITAMIN B12 [Concomitant]
  4. VITAMIN D3 [Concomitant]
  5. ZYRTEC [Concomitant]

REACTIONS (3)
  - Fatigue [Recovered/Resolved]
  - Flushing [Not Recovered/Not Resolved]
  - Pruritus [Not Recovered/Not Resolved]
